FAERS Safety Report 8160064-9 (Version None)
Quarter: 2012Q1

REPORT INFORMATION
  Report Type: 
  Country: None (occurrence: None)
  Receive Date: 20120223
  Receipt Date: 20120217
  Transmission Date: 20120608
  Serious: No
  Sender: FDA-Public Use
  Company Number: US-BAYER-2012-016713

PATIENT
  Sex: Female

DRUGS (2)
  1. ATENOLOL [Concomitant]
     Dosage: UNK
  2. AVELOX [Suspect]
     Indication: SINUSITIS
     Dosage: 400 MG, UNK
     Route: 048
     Dates: start: 20110318, end: 20110324

REACTIONS (6)
  - DIARRHOEA [None]
  - ASTHENIA [None]
  - DEPRESSION [None]
  - NERVOUSNESS [None]
  - RESTLESSNESS [None]
  - TENDON PAIN [None]
